FAERS Safety Report 10222784 (Version 1)
Quarter: 2014Q2

REPORT INFORMATION
  Report Type: Spontaneous
  Country: TW (occurrence: TW)
  Receive Date: 20140606
  Receipt Date: 20140606
  Transmission Date: 20141212
  Serious: Yes (Other)
  Sender: FDA-Public Use
  Company Number: TW-BRISTOL-MYERS SQUIBB COMPANY-20904603

PATIENT
  Age: 62 Year
  Sex: Female

DRUGS (1)
  1. MITOMYCIN-C [Suspect]
     Indication: BLADDER NEOPLASM

REACTIONS (3)
  - Thrombocytopenia [Unknown]
  - Malaise [Unknown]
  - Haematuria [Unknown]
